FAERS Safety Report 5499476-0 (Version None)
Quarter: 2007Q4

REPORT INFORMATION
  Report Type: 
  Country: None (occurrence: None)
  Receive Date: 20071026
  Receipt Date: 20071017
  Transmission Date: 20080405
  Serious: Yes (Other)
  Sender: FDA-Public Use
  Company Number: US-ROCHE-519558

PATIENT
  Age: 24 Year
  Sex: Female
  Weight: 86.2 kg

DRUGS (7)
  1. ACCUTANE [Suspect]
     Indication: DRUG USE FOR UNKNOWN INDICATION
     Dosage: PATIENT WAS DISPENSED ACCUTANE 20-MG CAPSULES ON 07-MAY-07 AND 13-JUL-07.
     Route: 048
     Dates: start: 20070507, end: 20070913
  2. ACCUTANE [Suspect]
     Dosage: THE PATIENT WAS DISPENSED ACCUTANE 40-MG CAPSULES ON 06-JUN-07 AND 13-AUG-07.
     Route: 048
     Dates: start: 20070606, end: 20070913
  3. YASMIN [Concomitant]
     Indication: CONTRACEPTION
     Route: 048
     Dates: start: 20070401
  4. ZITHROMAX [Concomitant]
     Indication: DRUG USE FOR UNKNOWN INDICATION
     Dosage: PRESCRIBED FOR 4-5 DAYS.
     Route: 048
     Dates: start: 20070831
  5. PREDNISONE [Concomitant]
     Indication: DRUG USE FOR UNKNOWN INDICATION
     Dosage: PRESCRIBED 50 MG FOR THREE DAYS.
     Route: 048
     Dates: start: 20070830
  6. SUDAFED 12 HOUR [Concomitant]
     Indication: DRUG USE FOR UNKNOWN INDICATION
     Route: 048
     Dates: start: 20070831
  7. IBUPROFEN [Concomitant]
     Indication: DRUG USE FOR UNKNOWN INDICATION
     Route: 048
     Dates: start: 20070831

REACTIONS (6)
  - ABORTION SPONTANEOUS [None]
  - DRUG EFFECT DECREASED [None]
  - OTITIS MEDIA [None]
  - PHARYNGOLARYNGEAL PAIN [None]
  - PREGNANCY ON ORAL CONTRACEPTIVE [None]
  - VAGINAL HAEMORRHAGE [None]
